FAERS Safety Report 10498132 (Version 1)
Quarter: 2014Q4

REPORT INFORMATION
  Report Type: Spontaneous
  Country: US (occurrence: None)
  Receive Date: 20141003
  Receipt Date: 20141003
  Transmission Date: 20150528
  Serious: No
  Sender: FDA-Public Use
  Company Number: None

PATIENT
  Age: 61 Year
  Sex: Male
  Weight: 78.3 kg

DRUGS (2)
  1. ADENOSINE. [Suspect]
     Active Substance: ADENOSINE
     Indication: SURGERY
     Dates: start: 20140917, end: 20140917
  2. ADENOSINE. [Suspect]
     Active Substance: ADENOSINE
     Indication: CARDIOVASCULAR DISORDER
     Dates: start: 20140917, end: 20140917

REACTIONS (6)
  - Bronchospasm [None]
  - Cardio-respiratory arrest [None]
  - Hypotension [None]
  - Dyspnoea [None]
  - Bradycardia [None]
  - Respiratory depression [None]

NARRATIVE: CASE EVENT DATE: 20140917
